FAERS Safety Report 5990481-4 (Version None)
Quarter: 2008Q4

REPORT INFORMATION
  Report Type: 
  Country: None (occurrence: None)
  Receive Date: 20081202
  Receipt Date: 20080423
  Transmission Date: 20090506
  Serious: Yes (Other)
  Sender: FDA-Public Use
  Company Number: WAES 0804USA04894

PATIENT
  Age: 42 Year
  Sex: Female
  Weight: 96.6162 kg

DRUGS (2)
  1. FOSAMAX [Suspect]
     Indication: OSTEOPOROSIS
     Dosage: 70 MG/WKY/PO
     Route: 048
     Dates: start: 20020920, end: 20060801
  2. NEURONTIN [Concomitant]

REACTIONS (7)
  - ANXIETY [None]
  - DRY MOUTH [None]
  - ELECTROENCEPHALOGRAM ABNORMAL [None]
  - FISTULA [None]
  - NUCLEAR MAGNETIC RESONANCE IMAGING BRAIN ABNORMAL [None]
  - OSTEONECROSIS [None]
  - RESORPTION BONE INCREASED [None]
